FAERS Safety Report 18649866 (Version 2)
Quarter: 2021Q1

REPORT INFORMATION
  Report Type: Spontaneous
  Country: US (occurrence: US)
  Receive Date: 20201222
  Receipt Date: 20210105
  Transmission Date: 20210419
  Serious: No
  Sender: FDA-Public Use
  Company Number: US-ASTRAZENECA-2020SF64626

PATIENT
  Age: 68 Year
  Sex: Male
  Weight: 80.7 kg

DRUGS (1)
  1. BYDUREON BCISE [Suspect]
     Active Substance: EXENATIDE
     Route: 058
     Dates: start: 20181113

REACTIONS (7)
  - Device leakage [Unknown]
  - Device delivery system issue [Unknown]
  - Injection site mass [Recovered/Resolved]
  - Incorrect dose administered by device [Unknown]
  - Needle issue [Unknown]
  - Neurological examination abnormal [Unknown]
  - Memory impairment [Unknown]

NARRATIVE: CASE EVENT DATE: 2018
